FAERS Safety Report 11029618 (Version 1)
Quarter: 2015Q2

REPORT INFORMATION
  Report Type: Spontaneous
  Country: US (occurrence: None)
  Receive Date: 20150413
  Receipt Date: 20150413
  Transmission Date: 20150821
  Serious: Yes (Other)
  Sender: FDA-Public Use
  Company Number: 2015GR_BP000631

PATIENT
  Age: 48 Year
  Sex: Male

DRUGS (10)
  1. FINASTERIDE. [Suspect]
     Active Substance: FINASTERIDE
     Indication: PRODUCT USED FOR UNKNOWN INDICATION
     Dosage: 5 MG (5 MG, ONCE DAILY), UNKNOWN
  2. GABAPENTIN. [Concomitant]
     Active Substance: GABAPENTIN
  3. NAPROXEN. [Concomitant]
     Active Substance: NAPROXEN
  4. LAMOTRIGINE. [Concomitant]
     Active Substance: LAMOTRIGINE
  5. WARFARIN [Concomitant]
     Active Substance: WARFARIN
  6. FOLIC ACID. [Concomitant]
     Active Substance: FOLIC ACID
  7. CARISOPRODOL. [Concomitant]
     Active Substance: CARISOPRODOL
  8. PHENYTOIN. [Concomitant]
     Active Substance: PHENYTOIN
  9. NIZATIDINE. [Concomitant]
     Active Substance: NIZATIDINE
  10. TETRACYCLINE [Concomitant]
     Active Substance: TETRACYCLINE

REACTIONS (2)
  - Faeces discoloured [None]
  - Seizure [None]
